FAERS Safety Report 14319516 (Version 1)
Quarter: 2017Q4

REPORT INFORMATION
  Report Type: Spontaneous
  Country: PL (occurrence: PL)
  Receive Date: 20171222
  Receipt Date: 20171222
  Transmission Date: 20180321
  Serious: Yes (Other)
  Sender: FDA-Public Use
  Company Number: PL-TEVA-2017-PL-835156

PATIENT
  Age: 80 Year
  Sex: Female
  Weight: 64 kg

DRUGS (2)
  1. CALCIUM FOLINATE [Suspect]
     Active Substance: LEUCOVORIN CALCIUM
     Indication: GASTRIC CANCER
     Dosage: DOSE: 32.5999; DOSE UNIT: NOT SPECIFIED
     Route: 042
     Dates: end: 20170622
  2. FLUOROURACIL. [Suspect]
     Active Substance: FLUOROURACIL
     Indication: GASTRIC CANCER
     Dosage: DOSE: 652; DOSE UNIT: NOT SPECIFIED
     Route: 042
     Dates: end: 20170622

REACTIONS (2)
  - Neutropenia [Unknown]
  - Anaemia [Unknown]

NARRATIVE: CASE EVENT DATE: 20170713
